FAERS Safety Report 10924708 (Version 1)
Quarter: 2015Q1

REPORT INFORMATION
  Report Type: Spontaneous
  Country: US (occurrence: None)
  Receive Date: 20150316
  Receipt Date: 20150316
  Transmission Date: 20150721
  Serious: Yes (Other)
  Sender: FDA-Public Use
  Company Number: None

PATIENT
  Age: 32 Year
  Sex: Male
  Weight: 72.12 kg

DRUGS (11)
  1. ZINC [Concomitant]
     Active Substance: ZINC\ZINC CHLORIDE
  2. TUMERIC ROOT [Concomitant]
  3. GINGER ROOT [Concomitant]
  4. OMEGA 3 OIL [Concomitant]
  5. MILK THISTLE SEED [Concomitant]
  6. TASIGNA [Concomitant]
     Active Substance: NILOTINIB
  7. VITAMIN C [Concomitant]
     Active Substance: ASCORBIC ACID
  8. TASIGNA [Suspect]
     Active Substance: NILOTINIB
     Indication: CHRONIC MYELOID LEUKAEMIA
     Dosage: 2 PILLS TWICE DAILY TAKEN BY MOUTH
     Route: 048
     Dates: start: 20141007, end: 20150313
  9. CHROMIUM [Concomitant]
     Active Substance: CHROMIC CHLORIDE\CHROMIUM
  10. SELENIUM [Concomitant]
     Active Substance: SELENIUM
  11. LYSINE [Concomitant]
     Active Substance: LYSINE

REACTIONS (6)
  - Pain in extremity [None]
  - Pain [None]
  - Bladder pain [None]
  - Abdominal pain upper [None]
  - Micturition urgency [None]
  - Gastrointestinal pain [None]

NARRATIVE: CASE EVENT DATE: 20150313
